FAERS Safety Report 19896336 (Version 1)
Quarter: 2021Q3

REPORT INFORMATION
  Report Type: Spontaneous
  Country: FR (occurrence: FR)
  Receive Date: 20210929
  Receipt Date: 20210929
  Transmission Date: 20211014
  Serious: Yes (Death)
  Sender: FDA-Public Use
  Company Number: FR-PFIZER INC-202101222572

PATIENT
  Age: 85 Year
  Sex: Female
  Weight: 76 kg

DRUGS (15)
  1. MELATONINE [Concomitant]
     Active Substance: MELATONIN
     Dosage: UNK
     Dates: start: 20210819
  2. CLOXACILLINE [CLOXACILLIN] [Concomitant]
     Active Substance: CLOXACILLIN
     Indication: INFECTION
     Dosage: 12 G
     Route: 042
     Dates: start: 20210820, end: 20210822
  3. CLOXACILLINE [CLOXACILLIN] [Concomitant]
     Active Substance: CLOXACILLIN
     Dosage: 6 G
     Route: 042
     Dates: start: 20210822, end: 20210823
  4. FUROSEMIDE. [Concomitant]
     Active Substance: FUROSEMIDE
     Dosage: 40 MG
     Dates: start: 20210824
  5. COLECALCIFEROL [Concomitant]
     Active Substance: CHOLECALCIFEROL
  6. HEPARINE CALCIUM [Concomitant]
     Active Substance: HEPARIN CALCIUM
     Dosage: 10000 IU
     Dates: start: 20210823
  7. AMLODIPINE [Concomitant]
     Active Substance: AMLODIPINE BESYLATE
     Dosage: UNK
     Dates: start: 20210816, end: 20210820
  8. ENOXAPARINE SODIQUE [Concomitant]
     Active Substance: ENOXAPARIN SODIUM
     Dosage: 4000 IU
     Dates: start: 20210811, end: 20210823
  9. RIFAMPICINE [Concomitant]
     Active Substance: RIFAMPIN
     Dosage: 600 MG
     Dates: start: 20210820, end: 20210823
  10. LEVOFLOXACINE [LEVOFLOXACIN] [Concomitant]
     Active Substance: LEVOFLOXACIN
     Indication: INFECTION
     Dosage: 1 G
     Route: 048
     Dates: start: 20210817, end: 20210820
  11. SERTRALINE [Concomitant]
     Active Substance: SERTRALINE HYDROCHLORIDE
     Dosage: UNK
     Dates: start: 20210819
  12. DAPTOMYCIN. [Suspect]
     Active Substance: DAPTOMYCIN
     Indication: INFECTION
     Dosage: 700 MG
     Route: 042
     Dates: start: 20210811, end: 20210820
  13. PHLOROGLUCINOL [Concomitant]
     Active Substance: PHLOROGLUCINOL
     Dosage: UNK
  14. TAZOCILLINE [Concomitant]
     Active Substance: PIPERACILLIN SODIUM\TAZOBACTAM SODIUM
     Indication: INFECTION
     Dosage: UNK, 3X/DAY
     Route: 042
     Dates: start: 20210811, end: 20210820
  15. SKENAN [Concomitant]
     Active Substance: MORPHINE SULFATE
     Dosage: UNK
     Dates: start: 20210811, end: 20210823

REACTIONS (1)
  - Rhabdomyolysis [Fatal]

NARRATIVE: CASE EVENT DATE: 20210820
